FAERS Safety Report 11874237 (Version 1)
Quarter: 2015Q4

REPORT INFORMATION
  Report Type: Report from Study
  Country: KR (occurrence: KR)
  Receive Date: 20151229
  Receipt Date: 20151229
  Transmission Date: 20160305
  Serious: Yes (Hospitalization)
  Sender: FDA-Public Use
  Company Number: KR-ROCHE-1685338

PATIENT
  Sex: Female

DRUGS (9)
  1. FOLIC ACID. [Concomitant]
     Active Substance: FOLIC ACID
     Dosage: 1TAB
     Route: 065
     Dates: start: 20120925
  2. CELEBREX [Concomitant]
     Active Substance: CELECOXIB
     Indication: RHEUMATOID ARTHRITIS
     Route: 065
     Dates: start: 20130820
  3. METHYSOL [Concomitant]
     Indication: RHEUMATOID ARTHRITIS
     Route: 065
     Dates: start: 20140312, end: 20140312
  4. METHOTREXATE [Concomitant]
     Active Substance: METHOTREXATE
     Indication: RHEUMATOID ARTHRITIS
     Route: 065
     Dates: start: 20120522
  5. TOCILIZUMAB [Suspect]
     Active Substance: TOCILIZUMAB
     Indication: RHEUMATOID ARTHRITIS
     Dosage: SUBSEQUENTLY, SHE RECEIVED THERAPY OF TOCILIZUMAB 480 MG ON 10/APR/2014 (2ND VISIT), 07/MAY/2014 (3
     Route: 042
     Dates: start: 20140205
  6. MOTILITONE [Concomitant]
     Active Substance: HERBALS
     Dosage: 1TAB
     Route: 065
     Dates: start: 20140205, end: 20140719
  7. CODENAL (SOUTH KOREA) [Concomitant]
     Indication: COUGH
     Route: 065
     Dates: start: 20140312, end: 20140410
  8. SOLONDO [Concomitant]
     Active Substance: PREDNISOLONE
     Indication: RHEUMATOID ARTHRITIS
     Route: 065
     Dates: start: 20130723
  9. LANSTON [Concomitant]
     Active Substance: LANSOPRAZOLE
     Dosage: 1TAB
     Route: 065
     Dates: start: 20130205

REACTIONS (1)
  - Inflammation [Recovered/Resolved]

NARRATIVE: CASE EVENT DATE: 2015
